FAERS Safety Report 17301166 (Version 1)
Quarter: 2020Q1

REPORT INFORMATION
  Report Type: Spontaneous
  Country: US (occurrence: US)
  Receive Date: 20200122
  Receipt Date: 20200122
  Transmission Date: 20200409
  Serious: Yes (Other)
  Sender: FDA-Public Use
  Company Number: NVSC2020US012004

PATIENT
  Sex: Female
  Weight: 48.53 kg

DRUGS (1)
  1. MAYZENT [Suspect]
     Active Substance: SIPONIMOD
     Indication: PRODUCT USED FOR UNKNOWN INDICATION
     Dosage: 2 MG, QD
     Route: 048
     Dates: start: 20191021

REACTIONS (7)
  - Communication disorder [Unknown]
  - Speech disorder [Unknown]
  - Muscle atrophy [Unknown]
  - Fall [Unknown]
  - Abnormal behaviour [Unknown]
  - Weight decreased [Unknown]
  - Malaise [Unknown]
